FAERS Safety Report 15127569 (Version 1)
Quarter: 2018Q3

REPORT INFORMATION
  Report Type: Spontaneous
  Country: US (occurrence: US)
  Receive Date: 20180710
  Receipt Date: 20180710
  Transmission Date: 20181010
  Serious: Yes (Other)
  Sender: FDA-Public Use
  Company Number: US-ENDO PHARMACEUTICALS INC-2017-004032

PATIENT
  Sex: Female
  Weight: 90.7 kg

DRUGS (8)
  1. OXYCODONE/ACETAMINOPHEN TABLETS [Concomitant]
     Active Substance: ACETAMINOPHEN\OXYCODONE HYDROCHLORIDE
     Indication: PAIN
     Dosage: UNK, UNKNOWN
     Route: 065
  2. GABAPENTIN. [Concomitant]
     Active Substance: GABAPENTIN
     Indication: DIABETIC NEUROPATHY
     Dosage: 400 MG, QID
     Route: 065
     Dates: start: 1996
  3. OXYCODONE HCL 30MG [Concomitant]
     Active Substance: OXYCODONE HYDROCHLORIDE
     Indication: PAIN
     Dosage: 120 MG, QID
     Route: 048
  4. OPANA ER [Suspect]
     Active Substance: OXYMORPHONE HYDROCHLORIDE
     Dosage: 400 MG, QID
     Route: 065
  5. XANAX [Concomitant]
     Active Substance: ALPRAZOLAM
     Indication: PRODUCT USED FOR UNKNOWN INDICATION
     Dosage: UNK UNKNOWN, UNKNOWN
     Route: 065
  6. OPANA ER [Suspect]
     Active Substance: OXYMORPHONE HYDROCHLORIDE
     Indication: PAIN
     Dosage: 520 MG, QID
     Route: 065
  7. OPANA ER [Suspect]
     Active Substance: OXYMORPHONE HYDROCHLORIDE
     Dosage: 160 MG, QID
     Route: 065
  8. OXYCODONE HCL 30MG [Concomitant]
     Active Substance: OXYCODONE HYDROCHLORIDE
     Indication: BREAKTHROUGH PAIN

REACTIONS (4)
  - Drug effect decreased [Not Recovered/Not Resolved]
  - Intentional product misuse [Unknown]
  - Inappropriate schedule of drug administration [Not Recovered/Not Resolved]
  - Prescribed overdose [Recovered/Resolved]

NARRATIVE: CASE EVENT DATE: 2008
